FAERS Safety Report 9677903 (Version 1)
Quarter: 2013Q4

REPORT INFORMATION
  Report Type: Spontaneous
  Country: US (occurrence: None)
  Receive Date: 20131107
  Receipt Date: 20131107
  Transmission Date: 20140711
  Serious: Yes (Hospitalization)
  Sender: FDA-Public Use
  Company Number: None

PATIENT
  Age: 73 Year
  Sex: Male
  Weight: 83.5 kg

DRUGS (12)
  1. OFATUMUMAB [Suspect]
     Indication: CHRONIC LYMPHOCYTIC LEUKAEMIA
     Route: 042
     Dates: start: 20130429, end: 20131015
  2. ALEMTUZUMAB [Suspect]
     Route: 058
     Dates: start: 20130819, end: 20131030
  3. ACYCLOVIR [Concomitant]
  4. ATOVAQUONE [Concomitant]
  5. BRIMONIDINE [Concomitant]
  6. CALCIUM CARBONATE [Concomitant]
  7. FISH OIL CAPSULES [Concomitant]
  8. LATANOPROST [Concomitant]
  9. METFORMIN [Concomitant]
  10. MULTIVITAMINS [Concomitant]
  11. VORICONAZOLE [Concomitant]
  12. ZOCOR [Concomitant]

REACTIONS (2)
  - Tachycardia [None]
  - Pneumonia [None]
